FAERS Safety Report 4882418-6 (Version None)
Quarter: 2006Q1

REPORT INFORMATION
  Report Type: 
  Country: None (occurrence: None)
  Receive Date: 20060117
  Receipt Date: 20051215
  Transmission Date: 20060701
  Serious: Yes (Hospitalization)
  Sender: FDA-Public Use
  Company Number: JP-ABBOTT-05P-087-0319695-00

PATIENT
  Age: 60 Year
  Sex: Female
  Weight: 51 kg

DRUGS (9)
  1. CEFDINIR [Suspect]
     Indication: BRONCHITIS
     Route: 048
     Dates: start: 20051206, end: 20051206
  2. HOKUNALIN TAPE [Suspect]
     Indication: ASTHMA
     Route: 062
     Dates: start: 20051206, end: 20051206
  3. CARBOCISTEINE LYSINE [Concomitant]
     Indication: BRONCHITIS
     Route: 048
     Dates: start: 20051130, end: 20051206
  4. CARBOCISTEINE LYSINE [Concomitant]
     Indication: COUGH
     Dates: start: 20051208
  5. CARBOCISTEINE LYSINE [Concomitant]
     Indication: PRODUCTIVE COUGH
  6. DIMEMORFAN PHOSPHATE [Concomitant]
     Indication: BRONCHITIS
     Route: 048
     Dates: start: 20051130, end: 20051206
  7. DIHYDROCODEINE PHOSPHATE/DLMETHYLEPHEDRINE HYDROCHLORIDE/CHLORPHENIRAM [Concomitant]
     Indication: BRONCHITIS
     Route: 048
     Dates: start: 20051130, end: 20051206
  8. PLANTAGO HERB EXTRACT [Concomitant]
     Indication: COUGH
     Route: 048
     Dates: start: 20051208
  9. PLANTAGO HERB EXTRACT [Concomitant]
     Indication: PRODUCTIVE COUGH

REACTIONS (6)
  - BACTERIA SPUTUM IDENTIFIED [None]
  - BLOOD PRESSURE INCREASED [None]
  - DECREASED APPETITE [None]
  - NAUSEA [None]
  - TENSION HEADACHE [None]
  - VOMITING [None]
